FAERS Safety Report 8887661 (Version 1)
Quarter: 2012Q4

REPORT INFORMATION
  Report Type: 
  Country: DE (occurrence: DE)
  Receive Date: 20121106
  Receipt Date: 20121106
  Transmission Date: 20130627
  Serious: Yes (Other)
  Sender: FDA-Public Use
  Company Number: DE-PFIZER INC-2012273337

PATIENT
  Age: 71 Year
  Sex: Male

DRUGS (5)
  1. SORTIS [Suspect]
     Dosage: 20 mg, UNK
  2. PLAVIX [Concomitant]
  3. ASS [Concomitant]
  4. DELIX [Concomitant]
  5. BELOC-ZOC COMP [Concomitant]

REACTIONS (2)
  - Dyspnoea [Unknown]
  - Myalgia [Unknown]
